FAERS Safety Report 13380284 (Version 2)
Quarter: 2017Q2

REPORT INFORMATION
  Report Type: Report from Study
  Country: None (occurrence: BR)
  Receive Date: 20170329
  Receipt Date: 20170602
  Transmission Date: 20170830
  Serious: Yes (Hospitalization, Other)
  Sender: FDA-Public Use
  Company Number: BR-ABBVIE-17P-020-1914498-00

PATIENT
  Age: 17 Year
  Sex: Male
  Weight: 47 kg

DRUGS (7)
  1. AZATHIOPRINE. [Concomitant]
     Active Substance: AZATHIOPRINE
     Indication: CROHN^S DISEASE
     Route: 048
     Dates: start: 20170411
  2. HUMIRA [Suspect]
     Active Substance: ADALIMUMAB
     Indication: CROHN^S DISEASE
     Dosage: 1 DAY
     Route: 058
     Dates: start: 20161130, end: 20161130
  3. HUMIRA [Suspect]
     Active Substance: ADALIMUMAB
     Dosage: WEEK 2
     Route: 058
     Dates: start: 201612, end: 201612
  4. HUMIRA [Suspect]
     Active Substance: ADALIMUMAB
     Route: 058
  5. PREDNISONE. [Concomitant]
     Active Substance: PREDNISONE
     Indication: CROHN^S DISEASE
     Route: 048
     Dates: start: 201704
  6. OMEPRAZOLE. [Concomitant]
     Active Substance: OMEPRAZOLE
     Indication: GASTRIC DISORDER
     Route: 048
     Dates: start: 2016
  7. BENZATHINE BENZYLPENICILLIN (BENZETACIL) [Suspect]
     Active Substance: PENICILLIN G BENZATHINE
     Indication: PRODUCT USED FOR UNKNOWN INDICATION
     Route: 065

REACTIONS (15)
  - Aphthous ulcer [Unknown]
  - Abdominal pain [Not Recovered/Not Resolved]
  - Crohn^s disease [Unknown]
  - Injection site pain [Unknown]
  - Laryngeal oedema [Unknown]
  - Weight decreased [Recovered/Resolved]
  - Proctalgia [Unknown]
  - Abdominal pain [Recovering/Resolving]
  - Hypophagia [Unknown]
  - Diarrhoea haemorrhagic [Recovered/Resolved]
  - Aphthous ulcer [Recovered/Resolved]
  - Lip swelling [Not Recovered/Not Resolved]
  - Oral pain [Not Recovered/Not Resolved]
  - Acne [Recovered/Resolved]
  - Dysphagia [Unknown]

NARRATIVE: CASE EVENT DATE: 2016
